FAERS Safety Report 4394269-X (Version None)
Quarter: 2004Q3

REPORT INFORMATION
  Report Type: 
  Country: None (occurrence: None)
  Receive Date: 20040707
  Receipt Date: 20040625
  Transmission Date: 20050211
  Serious: No
  Sender: FDA-Public Use
  Company Number: 2003UW11984

PATIENT
  Age: 60 Year
  Sex: Male
  Weight: 140.6151 kg

DRUGS (1)
  1. PRILOSEC [Suspect]
     Indication: STOMACH DISCOMFORT
     Dosage: 1 DF QD PO
     Route: 048
     Dates: start: 20030921, end: 20030921

REACTIONS (6)
  - DYSPHAGIA [None]
  - DYSPNOEA [None]
  - FATIGUE [None]
  - HYPERSENSITIVITY [None]
  - SWELLING FACE [None]
  - URTICARIA [None]
